FAERS Safety Report 6391860-6 (Version None)
Quarter: 2009Q4

REPORT INFORMATION
  Report Type: 
  Country: None (occurrence: None)
  Receive Date: 20091007
  Receipt Date: 20090928
  Transmission Date: 20100525
  Serious: Yes (Hospitalization)
  Sender: FDA-Public Use
  Company Number: US-AMGEN-QUU358065

PATIENT
  Sex: Female

DRUGS (2)
  1. ENBREL [Suspect]
     Indication: RHEUMATOID ARTHRITIS
     Route: 058
     Dates: start: 20050101
  2. VITAMIN TAB [Concomitant]

REACTIONS (4)
  - DYSPEPSIA [None]
  - EYE SWELLING [None]
  - PRE-ECLAMPSIA [None]
  - RHEUMATOID ARTHRITIS [None]
